FAERS Safety Report 13551757 (Version 1)
Quarter: 2017Q2

REPORT INFORMATION
  Report Type: Spontaneous
  Country: US (occurrence: US)
  Receive Date: 20170516
  Receipt Date: 20170516
  Transmission Date: 20170830
  Serious: No
  Sender: FDA-Public Use
  Company Number: US-009507513-1705USA006506

PATIENT
  Age: 22 Year
  Sex: Male

DRUGS (12)
  1. CYCLOPHOSPHAMIDE. [Suspect]
     Active Substance: CYCLOPHOSPHAMIDE
     Indication: B PRECURSOR TYPE ACUTE LEUKAEMIA
     Dosage: A COURSE
  2. DOXORUBICIN [Suspect]
     Active Substance: DOXORUBICIN
     Indication: B PRECURSOR TYPE ACUTE LEUKAEMIA
     Dosage: A COURSE
  3. METHOTREXATE. [Suspect]
     Active Substance: METHOTREXATE
     Indication: B PRECURSOR TYPE ACUTE LEUKAEMIA
     Dosage: A COURSE
     Route: 037
  4. VINCRISTINE [Suspect]
     Active Substance: VINCRISTINE
     Indication: B PRECURSOR TYPE ACUTE LEUKAEMIA
     Dosage: A COURSE
  5. VINCRISTINE [Suspect]
     Active Substance: VINCRISTINE
     Dosage: 6 ADDITIONAL COURSES
  6. CYTARABINE. [Suspect]
     Active Substance: CYTARABINE
     Dosage: 6 ADDITIONAL COURSES
     Route: 037
  7. DEXAMETHASONE. [Suspect]
     Active Substance: DEXAMETHASONE
     Dosage: 6 ADDITIONAL COURSES
     Route: 048
  8. CYCLOPHOSPHAMIDE. [Suspect]
     Active Substance: CYCLOPHOSPHAMIDE
     Dosage: 6 ADDITIONAL COURSES
  9. DEXAMETHASONE. [Suspect]
     Active Substance: DEXAMETHASONE
     Indication: B PRECURSOR TYPE ACUTE LEUKAEMIA
     Dosage: A COURSE
     Route: 048
  10. DOXORUBICIN [Suspect]
     Active Substance: DOXORUBICIN
     Dosage: 6 ADDITIONAL COURSES
  11. CYTARABINE. [Suspect]
     Active Substance: CYTARABINE
     Indication: B PRECURSOR TYPE ACUTE LEUKAEMIA
     Dosage: A COURSE
     Route: 037
  12. METHOTREXATE. [Suspect]
     Active Substance: METHOTREXATE
     Dosage: 6 ADDITIONAL COURSES
     Route: 037

REACTIONS (2)
  - Fatigue [Unknown]
  - Weight decreased [Unknown]
